FAERS Safety Report 25185987 (Version 2)
Quarter: 2025Q2

REPORT INFORMATION
  Report Type: Spontaneous
  Country: US (occurrence: US)
  Receive Date: 20250410
  Receipt Date: 20250514
  Transmission Date: 20250717
  Serious: No
  Sender: JOHNSON AND JOHNSON
  Company Number: US-VIIV HEALTHCARE-US2025AMR037684

PATIENT
  Age: 64 Year
  Sex: Male

DRUGS (2)
  1. RILPIVIRINE [Suspect]
     Active Substance: RILPIVIRINE
     Indication: HIV infection
     Route: 065
     Dates: start: 20250226, end: 20250325
  2. CABOTEGRAVIR [Suspect]
     Active Substance: CABOTEGRAVIR
     Indication: HIV infection
     Route: 065
     Dates: start: 20250226, end: 20250325

REACTIONS (3)
  - Injection site bruising [Recovered/Resolved]
  - Pruritus [Recovered/Resolved]
  - Musculoskeletal pain [Recovered/Resolved]

NARRATIVE: CASE EVENT DATE: 20250226
